FAERS Safety Report 4302043-5 (Version None)
Quarter: 2004Q1

REPORT INFORMATION
  Report Type: 
  Country: None (occurrence: None)
  Receive Date: 20040220
  Receipt Date: 20040130
  Transmission Date: 20041129
  Serious: Yes (Hospitalization)
  Sender: FDA-Public Use
  Company Number: MEDI-0001381

PATIENT
  Age: 7 Year
  Sex: Male

DRUGS (4)
  1. ETHYOL [Suspect]
     Indication: CHEMOTHERAPY
     Dosage: 740 MG/M2, INTRAVENOUS
     Route: 042
  2. CCNU (LOMUSTINE) [Concomitant]
  3. VINCRISTINE [Concomitant]
  4. CISPLATIN [Concomitant]

REACTIONS (3)
  - NEUTROPENIA [None]
  - OTOTOXICITY [None]
  - PYREXIA [None]
